FAERS Safety Report 11919983 (Version 1)
Quarter: 2016Q1

REPORT INFORMATION
  Report Type: Report from Study
  Country: BR (occurrence: BR)
  Receive Date: 20160115
  Receipt Date: 20160115
  Transmission Date: 20160526
  Serious: Yes (Death, Other)
  Sender: FDA-Public Use
  Company Number: PHHY2015BR062236

PATIENT
  Sex: Male
  Weight: 62 kg

DRUGS (1)
  1. SANDOSTATIN LAR DEPOT [Suspect]
     Active Substance: OCTREOTIDE ACETATE
     Indication: ACROMEGALY
     Dosage: 30 MG (1 AMPOULE), QMO (EVERY 28 DAYS)
     Route: 065

REACTIONS (4)
  - Cerebrovascular accident [Fatal]
  - Cough [Unknown]
  - Cardiac disorder [Unknown]
  - Influenza [Recovering/Resolving]
